FAERS Safety Report 7263378-X (Version None)
Quarter: 2011Q1

REPORT INFORMATION
  Report Type: 
  Country: None (occurrence: None)
  Receive Date: 20110130
  Receipt Date: 20101027
  Transmission Date: 20110831
  Serious: Yes (Other)
  Sender: FDA-Public Use
  Company Number: US-ABBOTT-10P-163-0681704-00

PATIENT
  Sex: Male
  Weight: 81.72 kg

DRUGS (5)
  1. HUMIRA [Suspect]
     Indication: CROHN'S DISEASE
     Dates: start: 20090201
  2. MICARDIS [Concomitant]
     Indication: HYPERTENSION
     Dosage: 40/12.5MG DAILY
  3. LESCOL [Concomitant]
     Indication: BLOOD CHOLESTEROL INCREASED
     Dosage: 80 MG DAILY
  4. FENOFIBRATE [Concomitant]
     Indication: BLOOD CHOLESTEROL INCREASED
     Dosage: 145 MG DAILY
  5. VERAPAMIL HYDROCHLOIRDE [Concomitant]
     Indication: HYPERTENSION
     Dosage: 240 MG DAILY
     Dates: start: 19900101

REACTIONS (1)
  - BASAL CELL CARCINOMA [None]
